FAERS Safety Report 13351577 (Version 1)
Quarter: 2017Q1

REPORT INFORMATION
  Report Type: Spontaneous
  Country: TR (occurrence: TR)
  Receive Date: 20170320
  Receipt Date: 20170320
  Transmission Date: 20170429
  Serious: Yes (Hospitalization)
  Sender: FDA-Public Use
  Company Number: TR-TEVA-748771ROM

PATIENT
  Age: 67 Year
  Sex: Female

DRUGS (2)
  1. METHOTREXATE. [Suspect]
     Active Substance: METHOTREXATE
     Indication: PSORIASIS
     Dosage: 15 MG/WEEK FOR EIGHT YEARS
     Route: 065
  2. LANSOPRAZOLE. [Interacting]
     Active Substance: LANSOPRAZOLE
     Route: 065

REACTIONS (6)
  - Toxicity to various agents [Recovering/Resolving]
  - Hepatic enzyme increased [Unknown]
  - Pancytopenia [Recovered/Resolved]
  - Drug interaction [Recovering/Resolving]
  - Mucosal inflammation [Recovering/Resolving]
  - Skin ulcer [Recovering/Resolving]
